FAERS Safety Report 4355549-7 (Version None)
Quarter: 2004Q2

REPORT INFORMATION
  Report Type: 
  Country: None (occurrence: None)
  Receive Date: 20040505
  Receipt Date: 20040426
  Transmission Date: 20050107
  Serious: Yes (Hospitalization)
  Sender: FDA-Public Use
  Company Number: 04P-167-0258928-00

PATIENT
  Age: 37 Year
  Sex: Female

DRUGS (7)
  1. ERYTHROMYCIN [Suspect]
     Indication: LOWER RESPIRATORY TRACT INFECTION
     Dosage: 500 MG, 4 IN 1 D
  2. BIAXIN [Suspect]
     Dosage: 500 MG, 2 IN 1 D
  3. MEDROXYPROGESTERONE ACETATE [Suspect]
     Indication: CONTRACEPTION
     Dosage: INTRAMUSCULAR
     Route: 030
     Dates: start: 20030401, end: 20030101
  4. AMOXICILLIN [Suspect]
     Indication: LOWER RESPIRATORY TRACT INFECTION
     Dosage: 500 MG, 2 IN 1 D
     Dates: start: 20040105
  5. CODEINE PHOSPHATE [Suspect]
     Indication: PAIN
     Dosage: 15 MG, 4 IN 1 D
  6. BENDROFLUMETHIAZIDE [Concomitant]
  7. ENALAPRIL MALEATE [Concomitant]

REACTIONS (4)
  - CONDITION AGGRAVATED [None]
  - PNEUMONIA [None]
  - PULMONARY EMBOLISM [None]
  - UPPER RESPIRATORY TRACT INFECTION [None]
